FAERS Safety Report 5383043-3 (Version None)
Quarter: 2007Q2

REPORT INFORMATION
  Report Type: 
  Country: None (occurrence: None)
  Receive Date: 20070629
  Receipt Date: 20061215
  Transmission Date: 20071010
  Serious: Yes (Hospitalization)
  Sender: FDA-Public Use
  Company Number: US200612003184

PATIENT
  Age: 49 Year
  Sex: Male
  Weight: 97.5 kg

DRUGS (9)
  1. HUMALOG [Suspect]
  2. CYMBALTA [Suspect]
  3. METFORMIN HCL [Concomitant]
  4. AMARYL [Concomitant]
  5. NORVASC [Concomitant]
  6. VERAPAMIL [Concomitant]
  7. POTASSIUM ACETATE [Concomitant]
  8. ALTACE [Concomitant]
  9. CHROMIUM PICOLINATE (CHROMIUM PICOLINATE) [Concomitant]

REACTIONS (9)
  - ARRHYTHMIA [None]
  - ARTERIOSCLEROSIS [None]
  - BLOOD GLUCOSE DECREASED [None]
  - FALL [None]
  - LOSS OF CONSCIOUSNESS [None]
  - PALPITATIONS [None]
  - TACHYCARDIA [None]
  - WEIGHT DECREASED [None]
  - WOLFF-PARKINSON-WHITE SYNDROME [None]
